FAERS Safety Report 10260613 (Version 1)
Quarter: 2014Q2

REPORT INFORMATION
  Report Type: Spontaneous
  Country: US (occurrence: US)
  Receive Date: 20140626
  Receipt Date: 20140626
  Transmission Date: 20141212
  Serious: Yes (Other)
  Sender: FDA-Public Use
  Company Number: US-BEH-2014043345

PATIENT
  Sex: Female

DRUGS (1)
  1. HUMATE-P [Suspect]

REACTIONS (1)
  - Surgery [Unknown]
